FAERS Safety Report 6361698-4 (Version None)
Quarter: 2009Q3

REPORT INFORMATION
  Report Type: 
  Country: None (occurrence: None)
  Receive Date: 20090918
  Receipt Date: 20090910
  Transmission Date: 20100115
  Serious: Yes (Hospitalization)
  Sender: FDA-Public Use
  Company Number: US-GENENTECH-290173

PATIENT
  Sex: Male

DRUGS (4)
  1. BLINDED BORTEZOMIB [Suspect]
     Indication: MULTIPLE MYELOMA
     Dosage: 1395 MG, Q3W
     Route: 042
     Dates: start: 20090609
  2. BLINDED BEVACIZUMAB [Suspect]
     Indication: MULTIPLE MYELOMA
     Dosage: 1395 MG, Q3W
     Route: 042
     Dates: start: 20090609
  3. BLINDED PLACEBO [Suspect]
     Indication: MULTIPLE MYELOMA
     Dosage: 1395 MG, Q3W
     Route: 042
     Dates: start: 20090609
  4. BORTEZOMIB [Suspect]
     Indication: MULTIPLE MYELOMA

REACTIONS (1)
  - MENTAL STATUS CHANGES [None]
